FAERS Safety Report 6621001-9 (Version None)
Quarter: 2010Q1

REPORT INFORMATION
  Report Type: 
  Country: None (occurrence: None)
  Receive Date: 20100309
  Receipt Date: 20100226
  Transmission Date: 20100710
  Serious: Yes (Hospitalization)
  Sender: FDA-Public Use
  Company Number: PHHY2010CR11733

PATIENT
  Age: 89 Year
  Sex: Female

DRUGS (5)
  1. CATAFLAM [Suspect]
     Indication: PAIN
     Dosage: ONE TABLET TWO OR THREE TIMES PER DAY
     Route: 048
  2. VOLTAREN [Suspect]
     Indication: PAIN
     Dosage: ONE TABLET TWO OR THREE TIMES PER DAY
     Route: 048
  3. TRAMACET [Suspect]
     Indication: PAIN
  4. DOLO-MENALGIL [Suspect]
     Indication: PAIN
     Route: 030
  5. BERIFEN [Suspect]
     Indication: PAIN

REACTIONS (4)
  - CONSTIPATION [None]
  - DIVERTICULUM INTESTINAL HAEMORRHAGIC [None]
  - GASTROINTESTINAL HAEMORRHAGE [None]
  - SOMNOLENCE [None]
